FAERS Safety Report 8450330-1 (Version None)
Quarter: 2012Q2

REPORT INFORMATION
  Report Type: 
  Country: None (occurrence: None)
  Receive Date: 20120613
  Receipt Date: 20120529
  Transmission Date: 20120825
  Serious: Yes (Death, Hospitalization)
  Sender: FDA-Public Use
  Company Number: 2012P1038143

PATIENT
  Age: 77 Year
  Sex: Male

DRUGS (2)
  1. CEFTAZIDIME [Suspect]
     Indication: SEPSIS
  2. PREDNISOLONE [Concomitant]

REACTIONS (15)
  - PANCYTOPENIA [None]
  - GENERAL PHYSICAL HEALTH DETERIORATION [None]
  - OEDEMA [None]
  - RENAL ABSCESS [None]
  - PSEUDOMONAS INFECTION [None]
  - LOSS OF CONSCIOUSNESS [None]
  - HYPOPROTEINAEMIA [None]
  - CANDIDA SEPSIS [None]
  - STAPHYLOCOCCAL SKIN INFECTION [None]
  - TACHYPNOEA [None]
  - PLEURAL EFFUSION [None]
  - ASCITES [None]
  - SINUS TACHYCARDIA [None]
  - LUNG ABSCESS [None]
  - LIVER ABSCESS [None]
